FAERS Safety Report 8560464-9 (Version None)
Quarter: 2012Q3

REPORT INFORMATION
  Report Type: 
  Country: None (occurrence: None)
  Receive Date: 20120802
  Receipt Date: 20120726
  Transmission Date: 20120928
  Serious: Yes (Hospitalization, Other)
  Sender: FDA-Public Use
  Company Number: US-009507513-2012SP017428

PATIENT

DRUGS (1)
  1. NUVARING [Suspect]
     Indication: CONTRACEPTION
     Dosage: UNK
     Route: 067
     Dates: start: 20110101, end: 20110428

REACTIONS (11)
  - PULMONARY FIBROSIS [None]
  - ARRHYTHMIA [None]
  - BRADYCARDIA [None]
  - ATRIAL FIBRILLATION [None]
  - DEPRESSION [None]
  - MYOCARDIAL INFARCTION [None]
  - PULMONARY EMBOLISM [None]
  - HEART RATE IRREGULAR [None]
  - PALPITATIONS [None]
  - ALOPECIA [None]
  - TACHYCARDIA [None]
